FAERS Safety Report 22633378 (Version 1)
Quarter: 2023Q2

REPORT INFORMATION
  Report Type: Report from Study
  Country: BR (occurrence: BR)
  Receive Date: 20230623
  Receipt Date: 20230623
  Transmission Date: 20230721
  Serious: Yes (Death, Other)
  Sender: FDA-Public Use
  Company Number: BR-BoehringerIngelheim-2023-BI-245410

PATIENT
  Age: 73 Year
  Sex: Male

DRUGS (1)
  1. OFEV [Suspect]
     Active Substance: NINTEDANIB
     Indication: Product used for unknown indication
     Dates: start: 202210

REACTIONS (3)
  - Death [Fatal]
  - Immunodeficiency [Unknown]
  - Pneumonia influenzal [Unknown]

NARRATIVE: CASE EVENT DATE: 20230501
